FAERS Safety Report 7922544-8 (Version None)
Quarter: 2011Q4

REPORT INFORMATION
  Report Type: 
  Country: None (occurrence: None)
  Receive Date: 20111117
  Receipt Date: 20110121
  Transmission Date: 20120403
  Serious: No
  Sender: FDA-Public Use
  Company Number: US-AMGEN-USASP2011004033

PATIENT
  Age: 48 Year
  Sex: Female

DRUGS (5)
  1. ENBREL [Suspect]
     Indication: PRODUCT USED FOR UNKNOWN INDICATION
     Dosage: 50 MG, 2 TIMES/WK
  2. VITAMIN B                          /00056102/ [Concomitant]
  3. SYNTHROID [Concomitant]
     Dosage: 50 UNK, UNK
  4. MULTI-VITAMINS [Concomitant]
  5. VITAMIN D [Concomitant]
     Dosage: 10000 IU, UNK

REACTIONS (1)
  - INJECTION SITE REACTION [None]
